FAERS Safety Report 9605869 (Version 2)
Quarter: 2013Q4

REPORT INFORMATION
  Report Type: Report from Study
  Country: CA (occurrence: CA)
  Receive Date: 20131008
  Receipt Date: 20131114
  Transmission Date: 20140711
  Serious: Yes (Death)
  Sender: FDA-Public Use
  Company Number: PHHY2013CA112674

PATIENT
  Sex: Male

DRUGS (3)
  1. CLOZARIL [Suspect]
     Dosage: 375 MG, QD
     Route: 048
     Dates: start: 19930805
  2. PAROXETINE [Concomitant]
     Dosage: 10 MG, QD
  3. DEPAKINE [Concomitant]
     Dosage: 500 MG, QD

REACTIONS (1)
  - Coronary artery disease [Fatal]
